FAERS Safety Report 8976630 (Version 2)
Quarter: 2013Q2

REPORT INFORMATION
  Report Type: Spontaneous
  Country: JP (occurrence: JP)
  Receive Date: 20121220
  Receipt Date: 20130423
  Transmission Date: 20140414
  Serious: Yes (Other)
  Sender: FDA-Public Use
  Company Number: JP-MERCK-1212JPN005392

PATIENT
  Sex: Female

DRUGS (8)
  1. MENESIT TABLETS - 100 [Suspect]
     Indication: PARKINSON^S DISEASE
     Dosage: UNK
     Route: 048
     Dates: start: 201110
  2. MENESIT TABLETS - 100 [Suspect]
     Dosage: HALF OF THE TABLE IN THE MORNING, ONE TABLE DURING THE DAYTIME, HALF OF THE TABLE IN THE EVENING
     Route: 048
     Dates: start: 201209
  3. MENESIT TABLETS - 100 [Suspect]
     Dosage: UNK
     Route: 048
  4. DEPAS [Suspect]
     Indication: POLLAKIURIA
     Dosage: UNK
     Route: 048
     Dates: start: 201110
  5. REFLEX (MIRTAZAPINE) [Suspect]
     Indication: POLLAKIURIA
     Dosage: UNK
     Route: 048
     Dates: start: 201110
  6. MEILAX [Suspect]
     Indication: POLLAKIURIA
     Dosage: UNK
     Route: 048
     Dates: start: 201110
  7. LENDORMIN [Concomitant]
     Indication: PARKINSON^S DISEASE
     Dosage: UNK
     Route: 048
     Dates: start: 201110
  8. BIOFERMIN (BACILLUS SUBTILIS (+) LACTOBACILLUS ACIDOPHILUS (+) STREPTO [Concomitant]
     Dosage: UNK
     Route: 048

REACTIONS (14)
  - Cerebral infarction [Unknown]
  - Pollakiuria [Unknown]
  - Muscular weakness [Unknown]
  - Dysgeusia [Unknown]
  - Nausea [Recovering/Resolving]
  - Hypotonia [Recovered/Resolved]
  - Feeling abnormal [Recovered/Resolved]
  - Somnolence [Recovered/Resolved]
  - Pneumonia aspiration [Recovered/Resolved]
  - Dysuria [Unknown]
  - Parosmia [Unknown]
  - Oedema [Unknown]
  - Cardiac failure [Unknown]
  - Eye disorder [None]
